FAERS Safety Report 9111406 (Version 1)
Quarter: 2013Q1

REPORT INFORMATION
  Report Type: Spontaneous
  Country: US (occurrence: US)
  Receive Date: 20130219
  Receipt Date: 20130219
  Transmission Date: 20140127
  Serious: No
  Sender: FDA-Public Use
  Company Number: US-BRISTOL-MYERS SQUIBB COMPANY-16437154

PATIENT
  Age: 74 Year
  Sex: Male

DRUGS (10)
  1. ORENCIA [Suspect]
     Indication: RHEUMATOID ARTHRITIS
     Dosage: LAST INFUSION:17JAN2012.
     Dates: start: 20061130
  2. TYLENOL [Concomitant]
  3. SIMVASTATIN [Concomitant]
  4. BENICAR [Concomitant]
  5. METHOTREXATE [Concomitant]
     Dosage: 2.5MG
  6. FOLIC ACID [Concomitant]
  7. FINASTERIDE [Concomitant]
  8. TAMSULOSIN [Concomitant]
  9. BABY ASPIRIN [Concomitant]
  10. VITAMIN [Concomitant]

REACTIONS (1)
  - Oedema peripheral [Recovering/Resolving]
